FAERS Safety Report 23190434 (Version 4)
Quarter: 2023Q4

REPORT INFORMATION
  Report Type: Spontaneous
  Country: CA (occurrence: CA)
  Receive Date: 20231116
  Receipt Date: 20231228
  Transmission Date: 20240110
  Serious: Yes (Hospitalization, Other)
  Sender: FDA-Public Use
  Company Number: CA-CELLTRION INC.-2023CA012838

PATIENT

DRUGS (7)
  1. INFLECTRA [Suspect]
     Active Substance: INFLIXIMAB-DYYB
     Indication: Colitis ulcerative
     Dosage: 5 MG/KG, 0, 2, 6, THEN EVERY 8 WEEKS
     Route: 042
     Dates: start: 20230504
  2. INFLECTRA [Suspect]
     Active Substance: INFLIXIMAB-DYYB
     Dosage: 5 MG/KG, 0, 2, 6, THEN EVERY 8 WEEKS
     Route: 042
     Dates: start: 20230615
  3. INFLECTRA [Suspect]
     Active Substance: INFLIXIMAB-DYYB
     Dosage: 5 MG/KG (355 MG), EVERY 8 WEEKS
     Route: 042
     Dates: start: 20230810
  4. INFLECTRA [Suspect]
     Active Substance: INFLIXIMAB-DYYB
     Dosage: 10 MG/KG (10 MG/KG (700 MG), EVERY 8 WEEKS (6 WEEKS AND 3 DAYS, RESCUE DOSE)
     Route: 042
     Dates: start: 20230925
  5. INFLECTRA [Suspect]
     Active Substance: INFLIXIMAB-DYYB
     Dosage: 10 MG/KG FIXED DOSE: 700MG RESCUE DOSE AND THEN EVERY 8 WEEKS (EVERY 8 WEEKS)
     Route: 042
     Dates: start: 20231121
  6. MATERNA [ASCORBIC ACID;COPPER;CYANOCOBALAMIN;ERGOCALCIFEROL;FOLIC ACID [Concomitant]
     Dosage: UNK
  7. PREDNISONE [Concomitant]
     Active Substance: PREDNISONE
     Dosage: UNK

REACTIONS (12)
  - Clostridium difficile infection [Unknown]
  - Colitis ulcerative [Recovering/Resolving]
  - White blood cell count increased [Unknown]
  - Condition aggravated [Not Recovered/Not Resolved]
  - Drug level decreased [Not Recovered/Not Resolved]
  - Nasopharyngitis [Recovering/Resolving]
  - Pyrexia [Recovering/Resolving]
  - Chest discomfort [Recovering/Resolving]
  - Nasal congestion [Recovering/Resolving]
  - Off label use [Unknown]
  - Off label use [Unknown]
  - Intentional product use issue [Unknown]

NARRATIVE: CASE EVENT DATE: 20230101
